FAERS Safety Report 7893299-0 (Version None)
Quarter: 2011Q4

REPORT INFORMATION
  Report Type: 
  Country: None (occurrence: None)
  Receive Date: 20111104
  Receipt Date: 20111101
  Transmission Date: 20120403
  Serious: Yes (Death, Other)
  Sender: FDA-Public Use
  Company Number: DK-PFIZER INC-2011262183

PATIENT
  Age: 19 Year
  Sex: Male

DRUGS (10)
  1. OXAZEPAM [Suspect]
  2. DIAZEPAM [Suspect]
  3. NORDAZEPAM [Suspect]
  4. OXYCODONE HCL [Suspect]
  5. COCAINE [Suspect]
  6. CODEINE [Suspect]
  7. MIRTAZAPINE [Suspect]
  8. AMPHETAMINE SULFATE [Suspect]
  9. MORPHINE SULFATE [Suspect]
  10. TETRAHYDROCANNABINOL [Suspect]

REACTIONS (1)
  - TOXICITY TO VARIOUS AGENTS [None]
